FAERS Safety Report 18175956 (Version 1)
Quarter: 2020Q3

REPORT INFORMATION
  Report Type: Spontaneous
  Country: US (occurrence: US)
  Receive Date: 20200820
  Receipt Date: 20200820
  Transmission Date: 20201103
  Serious: Yes (Other)
  Sender: FDA-Public Use
  Company Number: US-MALLINCKRODT-T202004159

PATIENT
  Age: 48 Year
  Sex: Female
  Weight: 56 kg

DRUGS (2)
  1. UVADEX [Suspect]
     Active Substance: METHOXSALEN
     Indication: GRAFT VERSUS HOST DISEASE
     Dosage: UNK (EXTRACORPOREAL)
     Route: 050
     Dates: start: 20200810, end: 20200810
  2. HEPARIN [Concomitant]
     Active Substance: HEPARIN SODIUM
     Indication: PRODUCT USED FOR UNKNOWN INDICATION
     Dosage: 10,000 UNITS IN 500 ML NORMAL SALINE
     Route: 065

REACTIONS (6)
  - White blood cells urine positive [Unknown]
  - Urinary tract infection [Recovered/Resolved]
  - Crystal urine present [Unknown]
  - Burning sensation [Recovered/Resolved]
  - Blood urine present [Recovered/Resolved]
  - Urine analysis abnormal [Recovered/Resolved]

NARRATIVE: CASE EVENT DATE: 202008
